FAERS Safety Report 17567369 (Version 2)
Quarter: 2020Q2

REPORT INFORMATION
  Report Type: Spontaneous
  Country: US (occurrence: US)
  Receive Date: 20200320
  Receipt Date: 20200413
  Transmission Date: 20200713
  Serious: Yes (Hospitalization)
  Sender: FDA-Public Use
  Company Number: US-VERTEX PHARMACEUTICALS-2020-005164

PATIENT
  Age: 14 Year
  Sex: Female

DRUGS (11)
  1. KALYDECO [Suspect]
     Active Substance: IVACAFTOR
     Indication: CYSTIC FIBROSIS
     Dosage: 150 MG, BID
     Route: 048
     Dates: start: 2018
  2. SINGULAIR [Concomitant]
     Active Substance: MONTELUKAST SODIUM
  3. FLONASE [Concomitant]
     Active Substance: FLUTICASONE PROPIONATE
  4. CREON [Concomitant]
     Active Substance: PANCRELIPASE AMYLASE\PANCRELIPASE LIPASE\PANCRELIPASE PROTEASE
     Dosage: 24000 (6 MEALS/ 3 SNACKS),
  5. CLARITIN [Concomitant]
     Active Substance: LORATADINE
     Dosage: UNK, PRN
  6. MIRALAX [Concomitant]
     Active Substance: POLYETHYLENE GLYCOL 3350
  7. PEPCID [Concomitant]
     Active Substance: FAMOTIDINE
  8. VITAMIN D3 [Concomitant]
     Active Substance: CHOLECALCIFEROL
  9. PULMOZYME [Concomitant]
     Active Substance: DORNASE ALFA
  10. HYPERTONIC SALINE SOLUTION [Concomitant]
     Active Substance: SODIUM CHLORIDE
  11. VENTOLIN [Concomitant]
     Active Substance: ALBUTEROL SULFATE

REACTIONS (3)
  - Headache [Unknown]
  - Diarrhoea [Unknown]
  - Pancreatitis acute [Recovered/Resolved]

NARRATIVE: CASE EVENT DATE: 20200114
